FAERS Safety Report 7551252-0 (Version None)
Quarter: 2011Q2

REPORT INFORMATION
  Report Type: 
  Country: None (occurrence: None)
  Receive Date: 20110616
  Receipt Date: 20110604
  Transmission Date: 20111010
  Serious: Yes (Hospitalization, Other)
  Sender: FDA-Public Use
  Company Number: PHHY2011US03143

PATIENT
  Sex: Male

DRUGS (11)
  1. VITAMIN D [Concomitant]
     Dosage: 50000 IU, PER MONTH
  2. LEVAQUIN [Concomitant]
     Dosage: 500 MG, 14 DAILY DOSES
  3. DAPSONE [Concomitant]
     Indication: INSOMNIA
  4. VITAMIN B-12 [Concomitant]
     Indication: INSOMNIA
  5. FOLIC ACID [Concomitant]
     Dosage: 1 MG, UNK
  6. ACYCLOVIR [Concomitant]
     Dosage: 400 MG, BID
  7. SYNTHROID [Concomitant]
     Dosage: 75 UG, UNK
  8. EXJADE [Suspect]
     Indication: IRON OVERLOAD
     Dosage: UNK
     Route: 048
     Dates: start: 20110209, end: 20110414
  9. ASPIRIN [Concomitant]
     Dosage: 81 MG, UNK
  10. EXJADE [Suspect]
     Indication: ACUTE MYELOID LEUKAEMIA
     Dosage: 1750 MG, DAILY
     Route: 048
     Dates: start: 20101227
  11. AMBIEN [Concomitant]
     Indication: INSOMNIA

REACTIONS (22)
  - BLOOD GLUCOSE INCREASED [None]
  - STREPTOCOCCAL SEPSIS [None]
  - CHILLS [None]
  - ANAEMIA [None]
  - EYE DISORDER [None]
  - FEBRILE INFECTION [None]
  - RENAL FAILURE ACUTE [None]
  - BACTERAEMIA [None]
  - HEART RATE INCREASED [None]
  - EYE IRRITATION [None]
  - LIVER FUNCTION TEST ABNORMAL [None]
  - LEUKOCYTOSIS [None]
  - CLOSTRIDIUM DIFFICILE COLITIS [None]
  - ABDOMINAL DISCOMFORT [None]
  - HYPOMAGNESAEMIA [None]
  - HYPOTENSION [None]
  - BODY TEMPERATURE INCREASED [None]
  - MALAISE [None]
  - PAIN [None]
  - HYPERSENSITIVITY [None]
  - HEADACHE [None]
  - CONJUNCTIVITIS [None]
